FAERS Safety Report 5912035-8 (Version None)
Quarter: 2008Q4

REPORT INFORMATION
  Report Type: 
  Country: None (occurrence: None)
  Receive Date: 20081008
  Receipt Date: 20080928
  Transmission Date: 20090506
  Serious: Yes (Other)
  Sender: FDA-Public Use
  Company Number: US-AMGEN-QUU310436

PATIENT
  Sex: Female

DRUGS (2)
  1. ENBREL [Suspect]
     Indication: ANKYLOSING SPONDYLITIS
     Route: 058
     Dates: start: 20060729
  2. AMBIEN [Concomitant]

REACTIONS (17)
  - BRAIN INJURY [None]
  - CHILLS [None]
  - CRYING [None]
  - DISORIENTATION [None]
  - FALL [None]
  - FEELING ABNORMAL [None]
  - GASTROINTESTINAL DISORDER [None]
  - INJECTION SITE IRRITATION [None]
  - JOINT SWELLING [None]
  - NEUROPATHY PERIPHERAL [None]
  - PAIN [None]
  - PANIC ATTACK [None]
  - PERICARDITIS [None]
  - PYREXIA [None]
  - SUICIDAL IDEATION [None]
  - TINNITUS [None]
  - VISUAL IMPAIRMENT [None]
